FAERS Safety Report 7500878-9 (Version None)
Quarter: 2011Q2

REPORT INFORMATION
  Report Type: 
  Country: None (occurrence: None)
  Receive Date: 20110524
  Receipt Date: 20110517
  Transmission Date: 20111010
  Serious: Yes (Other)
  Sender: FDA-Public Use
  Company Number: B0674034A

PATIENT
  Age: 49 Year
  Sex: Female

DRUGS (7)
  1. LAMOTRIGINE [Suspect]
     Dates: end: 20100801
  2. CLOZARIL [Suspect]
     Route: 048
     Dates: start: 20030101, end: 20041001
  3. AMISULPRIDE [Suspect]
     Indication: SCHIZOPHRENIA
     Route: 048
     Dates: end: 20100801
  4. AMISULPRIDE [Suspect]
     Route: 048
  5. PAROXETINE HCL [Concomitant]
     Indication: DEPRESSION
     Route: 048
  6. TEMAZ [Concomitant]
     Indication: INSOMNIA
     Route: 048
  7. RAMIPRIL [Concomitant]
     Indication: HYPERTENSION
     Route: 048

REACTIONS (8)
  - BREAST ABSCESS [None]
  - WHITE BLOOD CELL COUNT INCREASED [None]
  - MENTAL IMPAIRMENT [None]
  - BREAST CANCER [None]
  - PLATELET COUNT DECREASED [None]
  - METASTASES TO SPINE [None]
  - ABSCESS [None]
  - NEUTROPHIL COUNT INCREASED [None]
